FAERS Safety Report 4865274-1 (Version None)
Quarter: 2005Q4

REPORT INFORMATION
  Report Type: 
  Country: None (occurrence: None)
  Receive Date: 20051223
  Receipt Date: 20051121
  Transmission Date: 20060501
  Serious: Yes (Death, Other)
  Sender: FDA-Public Use
  Company Number: JP-SANOFI-SYNTHELABO-F01200502499

PATIENT
  Sex: Male
  Weight: 58 kg

DRUGS (9)
  1. OXALIPLATIN [Suspect]
     Indication: RECTAL CANCER
     Route: 042
     Dates: start: 20051025, end: 20051025
  2. FLUOROURACIL [Suspect]
     Dosage: 500 MG (308.6 MG/M2) IV BOLUS THEN 1000 MG (617.3 MG/M2) IVCONTINUOUS INFUSION, D1+2 Q2W
     Route: 042
     Dates: start: 20051025, end: 20051026
  3. CALCIUM LEVOFOLINATE [Suspect]
     Route: 042
     Dates: start: 20051025, end: 20051026
  4. PIPERACILLIN SODIUM [Concomitant]
     Dosage: 4 G
     Route: 042
     Dates: start: 20051106, end: 20051106
  5. MINOCYCLINE HYDROCHLORIDE [Concomitant]
     Dosage: 200 MG
     Route: 042
     Dates: start: 20051107, end: 20051107
  6. FOSFLUCONAZOLE [Concomitant]
     Dosage: 400 MG
     Route: 042
     Dates: start: 20051107, end: 20051107
  7. MEROPENEM TRIHYDRATE [Concomitant]
     Dosage: 1 G
     Route: 042
     Dates: start: 20051107, end: 20051107
  8. FILGRASTIM [Concomitant]
     Dosage: 75 MCG
     Route: 058
     Dates: start: 20051107, end: 20051107
  9. VENOGLOBULIN-I [Concomitant]
     Dosage: 5 G
     Route: 042
     Dates: start: 20051107, end: 20051107

REACTIONS (9)
  - BLOOD CREATININE INCREASED [None]
  - HAEMOGLOBIN DECREASED [None]
  - LEUKOPENIA [None]
  - NAUSEA [None]
  - NEUROPATHY PERIPHERAL [None]
  - PNEUMONIA [None]
  - SEPSIS [None]
  - SEPTIC SHOCK [None]
  - THROMBOCYTOPENIA [None]
